FAERS Safety Report 9939466 (Version 1)
Quarter: 2014Q1

REPORT INFORMATION
  Report Type: Report from Study
  Country: US (occurrence: US)
  Receive Date: 20140303
  Receipt Date: 20140303
  Transmission Date: 20141002
  Serious: No
  Sender: FDA-Public Use
  Company Number: US-ABBVIE-13P-163-1033485-00

PATIENT
  Age: 66 Year
  Sex: Female

DRUGS (4)
  1. HUMIRA [Suspect]
     Indication: RHEUMATOID ARTHRITIS
     Dates: start: 20121003
  2. LEFLUNOMIDE [Concomitant]
     Indication: RHEUMATOID ARTHRITIS
  3. FOSAMAX [Concomitant]
     Indication: OSTEOARTHRITIS
  4. RESTASIS [Concomitant]
     Indication: DRY EYE
     Dosage: EYE DROPS TWICE DAILY IN BOTH EYES

REACTIONS (1)
  - Influenza [Not Recovered/Not Resolved]
